FAERS Safety Report 15213847 (Version 1)
Quarter: 2018Q3

REPORT INFORMATION
  Report Type: Spontaneous
  Country: US (occurrence: US)
  Receive Date: 20180730
  Receipt Date: 20180730
  Transmission Date: 20181010
  Serious: No
  Sender: FDA-Public Use
  Company Number: US-SA-2018SA205010

PATIENT
  Age: 68 Year
  Sex: Male

DRUGS (5)
  1. DULOXETINE. [Concomitant]
     Active Substance: DULOXETINE
  2. AUBAGIO [Suspect]
     Active Substance: TERIFLUNOMIDE
     Indication: MULTIPLE SCLEROSIS
     Dosage: 1 DF, QD
  3. BIOTIN [Concomitant]
     Active Substance: BIOTIN
  4. LATANOPROST. [Concomitant]
     Active Substance: LATANOPROST
  5. IMIQUIMOD. [Concomitant]
     Active Substance: IMIQUIMOD

REACTIONS (1)
  - Unevaluable event [Unknown]
